FAERS Safety Report 8914658 (Version 1)
Quarter: 2012Q4

REPORT INFORMATION
  Report Type: 
  Country: JP (occurrence: JP)
  Receive Date: 20121119
  Receipt Date: 20121119
  Transmission Date: 20130627
  Serious: Yes (Hospitalization)
  Sender: FDA-Public Use
  Company Number: JP-NOVOPROD-364024

PATIENT
  Age: 88 Year
  Sex: Female

DRUGS (1)
  1. NOVORAPID [Suspect]
     Indication: TYPE 2 DIABETES MELLITUS
     Route: 058

REACTIONS (6)
  - White blood cell count increased [Unknown]
  - Blood glucose abnormal [Unknown]
  - Product quality issue [Unknown]
  - Blood glucose fluctuation [Unknown]
  - Product deposit [None]
  - Blood glucose increased [None]
